FAERS Safety Report 25753524 (Version 1)
Quarter: 2025Q3

REPORT INFORMATION
  Report Type: Spontaneous
  Country: CN (occurrence: CN)
  Receive Date: 20250903
  Receipt Date: 20250903
  Transmission Date: 20251020
  Serious: Yes (Hospitalization, Other)
  Sender: BEIGENE
  Company Number: CN-ROCHE-10000166700

PATIENT
  Age: 83 Year
  Weight: 67.6 kg

DRUGS (13)
  1. BRUKINSA [Suspect]
     Active Substance: ZANUBRUTINIB
     Indication: Diffuse large B-cell lymphoma
  2. BRUKINSA [Suspect]
     Active Substance: ZANUBRUTINIB
  3. POLATUZUMAB VEDOTIN [Suspect]
     Active Substance: POLATUZUMAB VEDOTIN
     Indication: Diffuse large B-cell lymphoma
  4. RITUXIMAB [Suspect]
     Active Substance: RITUXIMAB
     Indication: Diffuse large B-cell lymphoma
  5. LENALIDOMIDE [Suspect]
     Active Substance: LENALIDOMIDE
     Indication: Diffuse large B-cell lymphoma
  6. PREDNISONE [Suspect]
     Active Substance: PREDNISONE
     Indication: Diffuse large B-cell lymphoma
  7. SULFAMETHOXAZOLE [Concomitant]
     Active Substance: SULFAMETHOXAZOLE
  8. CEFPROZIL [Concomitant]
     Active Substance: CEFPROZIL
  9. OMEPRAZOLE [Concomitant]
     Active Substance: OMEPRAZOLE
  10. LEUCOGEN [Concomitant]
     Active Substance: LEUCOGEN
  11. ASPIRIN [Concomitant]
     Active Substance: ASPIRIN
  12. GRANULOCYTE COLONY-STIMULATING FACTOR NOS [Concomitant]
     Active Substance: GRANULOCYTE COLONY-STIMULATING FACTOR NOS
  13. PREDNISONE ACETATE [Concomitant]
     Active Substance: PREDNISONE ACETATE

REACTIONS (7)
  - Respiratory tract infection [Unknown]
  - Neutropenia [Unknown]
  - Leukopenia [Unknown]
  - Chronic kidney disease [Unknown]
  - Neutrophil count decreased [Unknown]
  - Respiratory failure [Unknown]
  - Off label use [Unknown]
